FAERS Safety Report 4563238-9 (Version None)
Quarter: 2005Q1

REPORT INFORMATION
  Report Type: 
  Country: None (occurrence: None)
  Receive Date: 20050121
  Receipt Date: 20050110
  Transmission Date: 20050727
  Serious: Yes (Hospitalization)
  Sender: FDA-Public Use
  Company Number: 2004065345

PATIENT
  Age: 54 Year
  Sex: Male
  Weight: 70 kg

DRUGS (6)
  1. NEURONTIN [Suspect]
     Indication: DIABETIC NEUROPATHY
     Dosage: 900 MG (3 IN 1 D), ORAL
     Route: 048
     Dates: start: 20040825, end: 20040901
  2. NEURONTIN [Suspect]
     Indication: NEUROPATHIC PAIN
     Dosage: 900 MG (3 IN 1 D), ORAL
     Route: 048
     Dates: start: 20040825, end: 20040901
  3. ALL OTHER THERAPEUTIC PRODUCTS (ALL OTHER THERAPEUTIC PRODUCTS) [Concomitant]
  4. PERINDOPRIL (PERINDOPRIL) [Concomitant]
  5. INSULIN [Concomitant]
  6. CODEINE PHOSPHATE AND ACETAMINOPHEN [Concomitant]

REACTIONS (3)
  - DEPRESSED LEVEL OF CONSCIOUSNESS [None]
  - FAECAL INCONTINENCE [None]
  - SOMNOLENCE [None]
